FAERS Safety Report 23836495 (Version 3)
Quarter: 2024Q2

REPORT INFORMATION
  Report Type: Spontaneous
  Country: GR (occurrence: GR)
  Receive Date: 20240509
  Receipt Date: 20240605
  Transmission Date: 20240715
  Serious: No
  Sender: FDA-Public Use
  Company Number: GR-PFIZER INC-PV202400059331

PATIENT
  Age: 9 Year
  Sex: Female
  Weight: 25 kg

DRUGS (2)
  1. GENOTROPIN [Suspect]
     Active Substance: SOMATROPIN
     Indication: Growth hormone deficiency
     Dosage: 5 MG, WEEKLY / 7 DAYS
     Route: 058
     Dates: start: 202311
  2. ARVECAP [Concomitant]
     Indication: Puberty
     Dosage: INJECTION EVERY 2 MONTHS

REACTIONS (7)
  - Drug dose omission by device [Unknown]
  - Device use error [Unknown]
  - Device malfunction [Unknown]
  - Device information output issue [Unknown]
  - Device mechanical issue [Unknown]
  - Device leakage [Unknown]
  - Device breakage [Unknown]

NARRATIVE: CASE EVENT DATE: 20240503
